FAERS Safety Report 18130217 (Version 4)
Quarter: 2020Q4

REPORT INFORMATION
  Report Type: Spontaneous
  Country: US (occurrence: US)
  Receive Date: 20200810
  Receipt Date: 20201101
  Transmission Date: 20210113
  Serious: Yes (Hospitalization, Other)
  Sender: FDA-Public Use
  Company Number: US-BRISTOL-MYERS SQUIBB COMPANY-BMS-2020-063631

PATIENT
  Age: 16 Year
  Sex: Female

DRUGS (1)
  1. SPRYCEL [Suspect]
     Active Substance: DASATINIB
     Indication: LEUKAEMIA
     Dosage: 120 MILLIGRAM, QD
     Route: 048
     Dates: start: 20200708

REACTIONS (10)
  - Nausea [Recovering/Resolving]
  - Fatigue [Unknown]
  - Diarrhoea [Unknown]
  - Vomiting [Recovering/Resolving]
  - Gastric infection [Unknown]
  - Headache [Recovering/Resolving]
  - Pyrexia [Unknown]
  - Alopecia [Unknown]
  - Mucosal inflammation [Unknown]
  - Rash [Unknown]

NARRATIVE: CASE EVENT DATE: 202007
